FAERS Safety Report 12252714 (Version 1)
Quarter: 2016Q2

REPORT INFORMATION
  Report Type: Spontaneous
  Country: US (occurrence: None)
  Receive Date: 20160408
  Receipt Date: 20160408
  Transmission Date: 20160815
  Serious: No
  Sender: FDA-Public Use
  Company Number: None

PATIENT
  Age: 67 Year
  Sex: Female
  Weight: 67.13 kg

DRUGS (4)
  1. SYNTHROID [Concomitant]
     Active Substance: LEVOTHYROXINE SODIUM
  2. ATROVASTATIN [Concomitant]
     Active Substance: ATORVASTATIN CALCIUM
  3. PRESERVATIVE FREE EYEDROPS [Concomitant]
  4. LUBRIFRESH P.M. [Suspect]
     Active Substance: MINERAL OIL\PETROLATUM
     Indication: DRY EYE
     Dosage: INTO THE EYE
     Route: 047
     Dates: start: 20160328, end: 20160401

REACTIONS (3)
  - Eye irritation [None]
  - Ocular hyperaemia [None]
  - Product substitution issue [None]

NARRATIVE: CASE EVENT DATE: 20160328
